FAERS Safety Report 24978270 (Version 1)
Quarter: 2025Q1

REPORT INFORMATION
  Report Type: Spontaneous
  Country: CN (occurrence: CN)
  Receive Date: 20250217
  Receipt Date: 20250217
  Transmission Date: 20250408
  Serious: Yes (Other)
  Sender: JOHNSON AND JOHNSON
  Company Number: CN-BAYER-2025A022344

PATIENT
  Sex: Male

DRUGS (1)
  1. RIVAROXABAN [Suspect]
     Active Substance: RIVAROXABAN
     Indication: Venous thrombosis
     Route: 048
     Dates: start: 202411

REACTIONS (2)
  - Renal impairment [Unknown]
  - Limb injury [Unknown]

NARRATIVE: CASE EVENT DATE: 20250201
